FAERS Safety Report 7419741-7 (Version None)
Quarter: 2011Q2

REPORT INFORMATION
  Report Type: 
  Country: None (occurrence: None)
  Receive Date: 20110413
  Receipt Date: 20110413
  Transmission Date: 20111010
  Serious: Yes (Other)
  Sender: FDA-Public Use
  Company Number: None

PATIENT
  Age: 55 Year
  Sex: Female
  Weight: 65.7716 kg

DRUGS (1)
  1. BUPROPION 75MG [Suspect]
     Indication: MAJOR DEPRESSION
     Dosage: 3X 75MG 225MG  2 TIMES AM, 1 TIME LUNCH PO
     Route: 048
     Dates: start: 20110307, end: 20110317

REACTIONS (1)
  - ERYTHEMA MULTIFORME [None]
